FAERS Safety Report 16774536 (Version 1)
Quarter: 2019Q3

REPORT INFORMATION
  Report Type: Spontaneous
  Country: US (occurrence: US)
  Receive Date: 20190905
  Receipt Date: 20190905
  Transmission Date: 20191005
  Serious: No
  Sender: FDA-Public Use
  Company Number: US-LUPIN PHARMACEUTICALS INC.-2019-04439

PATIENT
  Age: 56 Year
  Sex: Male
  Weight: 72.56 kg

DRUGS (2)
  1. AMLODIPINE BESYLATE TABLETS USP, 10 MG [Suspect]
     Active Substance: AMLODIPINE BESYLATE
     Dosage: 10 MILLIGRAM, QD (NEW TABLET)
     Route: 048
     Dates: start: 20190624, end: 20190704
  2. AMLODIPINE BESYLATE TABLETS USP, 10 MG [Suspect]
     Active Substance: AMLODIPINE BESYLATE
     Indication: HYPERTENSION
     Dosage: 10 MILLIGRAM, QD
     Route: 048
     Dates: start: 201807

REACTIONS (2)
  - Headache [Recovering/Resolving]
  - Abdominal pain upper [Recovered/Resolved]

NARRATIVE: CASE EVENT DATE: 20190701
